FAERS Safety Report 6073041-9 (Version None)
Quarter: 2009Q1

REPORT INFORMATION
  Report Type: 
  Country: None (occurrence: None)
  Receive Date: 20090211
  Receipt Date: 20090203
  Transmission Date: 20090719
  Serious: Yes (Other)
  Sender: FDA-Public Use
  Company Number: US-JNJFOC-20090201326

PATIENT
  Sex: Female
  Weight: 56.25 kg

DRUGS (1)
  1. DURAGESIC-100 [Suspect]
     Indication: BACK PAIN
     Route: 062

REACTIONS (5)
  - ACNE [None]
  - APPLICATION SITE REACTION [None]
  - BACK PAIN [None]
  - INCORRECT DRUG ADMINISTRATION DURATION [None]
  - STAPHYLOCOCCAL INFECTION [None]
